FAERS Safety Report 8797564 (Version 1)
Quarter: 2012Q4

REPORT INFORMATION
  Report Type: 
  Country: CH (occurrence: CH)
  Receive Date: 20120920
  Receipt Date: 20120920
  Transmission Date: 20130627
  Serious: Yes (Hospitalization, Other)
  Sender: FDA-Public Use
  Company Number: CH-009507513-1209CHE005889

PATIENT
  Age: 46 Year
  Sex: Female

DRUGS (3)
  1. REMERON [Suspect]
     Dosage: 8 DF, Once
     Route: 048
     Dates: start: 20120427, end: 20120427
  2. VENLAFAXINE HYDROCHLORIDE [Suspect]
     Dosage: 14 DF, Once
     Route: 048
     Dates: start: 20120427, end: 20120427
  3. LORAZEPAM [Suspect]
     Dosage: 10 DF, Once
     Route: 048
     Dates: start: 20120427, end: 20120427

REACTIONS (6)
  - Stupor [Recovered/Resolved]
  - Suicide attempt [Recovered/Resolved]
  - Hypotension [Recovered/Resolved]
  - Areflexia [Recovered/Resolved]
  - Acidosis [Recovered/Resolved]
  - Intentional overdose [Unknown]
